FAERS Safety Report 4942590-6 (Version None)
Quarter: 2006Q1

REPORT INFORMATION
  Report Type: 
  Country: None (occurrence: None)
  Receive Date: 20060308
  Receipt Date: 20060224
  Transmission Date: 20060701
  Serious: Yes (Other)
  Sender: FDA-Public Use
  Company Number: 2006AP000163

PATIENT
  Age: 54 Year
  Sex: Male

DRUGS (10)
  1. AMIODARONE HCL [Suspect]
     Indication: ATRIAL FIBRILLATION
     Dosage: SEE IMAGE
     Route: 042
  2. AMIODARONE HCL [Suspect]
     Indication: ATRIAL FIBRILLATION
     Dosage: SEE IMAGE
     Route: 042
  3. AMIODARONE HCL [Suspect]
     Indication: ATRIAL FIBRILLATION
     Dosage: SEE IMAGE
     Route: 042
  4. AMPHOTERICIN B [Concomitant]
  5. ERYTHROMYCIN [Concomitant]
  6. IMIPENEM [Concomitant]
  7. CILASTATIN [Concomitant]
  8. LEVOFLOXACIN [Concomitant]
  9. OXANDROLONE [Concomitant]
  10. RANITIDINE [Concomitant]

REACTIONS (4)
  - ALANINE AMINOTRANSFERASE INCREASED [None]
  - ASPARTATE AMINOTRANSFERASE INCREASED [None]
  - BODY TEMPERATURE INCREASED [None]
  - HEPATOTOXICITY [None]
